FAERS Safety Report 12247855 (Version 1)
Quarter: 2016Q2

REPORT INFORMATION
  Report Type: Spontaneous
  Country: US (occurrence: US)
  Receive Date: 20160408
  Receipt Date: 20160408
  Transmission Date: 20160815
  Serious: No
  Sender: FDA-Public Use
  Company Number: US-HORIZON-PEN-0163-2016

PATIENT
  Age: 60 Year
  Sex: Female

DRUGS (10)
  1. VALIUM [Concomitant]
     Active Substance: DIAZEPAM
  2. PROTONIX [Concomitant]
     Active Substance: PANTOPRAZOLE SODIUM
  3. PENNSAID [Suspect]
     Active Substance: DICLOFENAC SODIUM
     Indication: PRODUCT USED FOR UNKNOWN INDICATION
     Dosage: TWICE DAILY
     Dates: start: 2015
  4. SYMBICORT [Concomitant]
     Active Substance: BUDESONIDE\FORMOTEROL FUMARATE DIHYDRATE
  5. LIPITOR [Concomitant]
     Active Substance: ATORVASTATIN CALCIUM
  6. ESTRADIOL. [Concomitant]
     Active Substance: ESTRADIOL
  7. ALBUTEROL. [Concomitant]
     Active Substance: ALBUTEROL
  8. SEROQUEL [Concomitant]
     Active Substance: QUETIAPINE FUMARATE
  9. TRAMADOL. [Concomitant]
     Active Substance: TRAMADOL
  10. LEXAPRO [Concomitant]
     Active Substance: ESCITALOPRAM OXALATE

REACTIONS (2)
  - Off label use [Unknown]
  - Therapy cessation [Unknown]

NARRATIVE: CASE EVENT DATE: 20160329
